FAERS Safety Report 14746698 (Version 2)
Quarter: 2018Q2

REPORT INFORMATION
  Report Type: Spontaneous
  Country: IN (occurrence: IN)
  Receive Date: 20180411
  Receipt Date: 20180510
  Transmission Date: 20180711
  Serious: Yes (Death)
  Sender: FDA-Public Use
  Company Number: IN-PFIZER INC-2018147221

PATIENT
  Age: 16 Year
  Sex: Male

DRUGS (9)
  1. SOLU-MEDROL [Suspect]
     Active Substance: METHYLPREDNISOLONE SODIUM SUCCINATE
     Dosage: 1 G, UNK
     Route: 048
     Dates: start: 20050919
  2. PANTOP [Concomitant]
     Active Substance: PANTOPRAZOLE SODIUM
     Dosage: UNK
  3. DIAZEPAM. [Concomitant]
     Active Substance: DIAZEPAM
     Dosage: UNK
     Dates: start: 20050920
  4. SULFAZONE [Concomitant]
     Dosage: UNK
  5. LASIX + K [Concomitant]
     Active Substance: FUROSEMIDE\POTASSIUM CHLORIDE
     Dosage: UNK
     Dates: start: 20050920
  6. EPTOIN [Concomitant]
     Active Substance: PHENYTOIN SODIUM
  7. ZOVIRAX [Concomitant]
     Active Substance: ACYCLOVIR
     Dosage: UNK
  8. PHENOBARBITONE /00023201/ [Concomitant]
     Active Substance: PHENOBARBITAL
     Dosage: UNK
  9. CALCIUM GLUCONATE. [Concomitant]
     Active Substance: CALCIUM GLUCONATE
     Dosage: UNK

REACTIONS (1)
  - Death [Fatal]

NARRATIVE: CASE EVENT DATE: 20050920
